FAERS Safety Report 9973146 (Version 1)
Quarter: 2014Q1

REPORT INFORMATION
  Report Type: Spontaneous
  Country: US (occurrence: None)
  Receive Date: 20140214
  Receipt Date: 20140214
  Transmission Date: 20141002
  Serious: Yes (Hospitalization)
  Sender: FDA-Public Use
  Company Number: 2013120011

PATIENT
  Sex: Female

DRUGS (1)
  1. ELESTRIN [Suspect]
     Dosage: 1.74 GM (1.74 GM, 1 IN 1 D), TOPICAL
     Route: 061
     Dates: start: 201207, end: 201305

REACTIONS (2)
  - Myocardial infarction [None]
  - Stress [None]
